FAERS Safety Report 6966571-6 (Version None)
Quarter: 2010Q3

REPORT INFORMATION
  Report Type: 
  Country: None (occurrence: None)
  Receive Date: 20100906
  Receipt Date: 20100826
  Transmission Date: 20110219
  Serious: No
  Sender: FDA-Public Use
  Company Number: US-BIOGENIDEC-2010BI030019

PATIENT
  Age: 63 Year
  Sex: Female

DRUGS (1)
  1. TYSABRI [Suspect]
     Indication: MULTIPLE SCLEROSIS
     Route: 042
     Dates: start: 20100519

REACTIONS (5)
  - ASTHENIA [None]
  - EYE PAIN [None]
  - EYE PRURITUS [None]
  - EYELID OEDEMA [None]
  - MUSCLE TIGHTNESS [None]
